FAERS Safety Report 8065516-8 (Version None)
Quarter: 2012Q1

REPORT INFORMATION
  Report Type: 
  Country: None (occurrence: None)
  Receive Date: 20120124
  Receipt Date: 20120116
  Transmission Date: 20120608
  Serious: Yes (Other)
  Sender: FDA-Public Use
  Company Number: JP-ASTELLAS-2012JP000433

PATIENT
  Sex: Male

DRUGS (3)
  1. INSULIN [Concomitant]
     Route: 065
  2. PROGRAF [Suspect]
     Indication: LUPUS NEPHRITIS
     Dosage: 3 MG, UNKNOWN/D
     Route: 048
  3. STEROID [Suspect]
     Dosage: 30 MG, UNKNOWN/D
     Route: 048

REACTIONS (1)
  - DIABETIC KETOACIDOSIS [None]
